FAERS Safety Report 9725656 (Version 1)
Quarter: 2013Q4

REPORT INFORMATION
  Report Type: Spontaneous
  Country: US (occurrence: None)
  Receive Date: 20131202
  Receipt Date: 20131202
  Transmission Date: 20140711
  Serious: Yes (Other)
  Sender: FDA-Public Use
  Company Number: None

PATIENT
  Age: 38 Year
  Sex: Female

DRUGS (1)
  1. METHYLPRENIDATE [Suspect]
     Indication: ATTENTION DEFICIT/HYPERACTIVITY DISORDER
     Route: 048
     Dates: start: 20131116, end: 20131127

REACTIONS (11)
  - Feeling jittery [None]
  - Anger [None]
  - Agitation [None]
  - Sleep disorder [None]
  - Palpitations [None]
  - Dehydration [None]
  - Drug ineffective [None]
  - Impaired work ability [None]
  - Attention deficit/hyperactivity disorder [None]
  - Product substitution issue [None]
  - Condition aggravated [None]
